FAERS Safety Report 4395053-3 (Version None)
Quarter: 2004Q3

REPORT INFORMATION
  Report Type: 
  Country: None (occurrence: None)
  Receive Date: 20040707
  Receipt Date: 20040621
  Transmission Date: 20050211
  Serious: Yes (Hospitalization)
  Sender: FDA-Public Use
  Company Number: US-JNJFOC-20040605744

PATIENT
  Age: 68 Year
  Sex: Male

DRUGS (16)
  1. ULTRAM [Suspect]
     Indication: DRUG USE FOR UNKNOWN INDICATION
     Dosage: ORAL
  2. RANIBIZUMAB (ALL OTHER THERAPEUTIC PRODUCTS) INJECTION [Suspect]
     Indication: MACULAR DEGENERATION
     Dosage: INJECTION
     Dates: start: 20030902
  3. PLACEBO (PLACEBO) [Suspect]
     Indication: MACULAR DEGENERATION
  4. FEXOFENADINE HCL [Concomitant]
  5. ASPIRIN [Concomitant]
  6. FUROSEMIDE [Concomitant]
  7. ISOSORBIDE (ISOSORBIDE) [Concomitant]
  8. PANTOPRAZOLE (PANTOPRAZOLE) [Concomitant]
  9. SIMVASTATIN [Concomitant]
  10. FINASTERIDE [Concomitant]
  11. TERAZOSIN (TERAZOSIN) [Concomitant]
  12. TRIAZOLAM [Concomitant]
  13. ENALAPRIL MALEATE [Concomitant]
  14. METOPROLOL (METOPROLOL) [Concomitant]
  15. CELECOXIB (CELECOXIB) [Concomitant]
  16. ALBUTEROL INHALER (SALBUTAMOL) [Concomitant]

REACTIONS (4)
  - CONVULSION [None]
  - INFLUENZA [None]
  - LARYNGOTRACHEO BRONCHITIS [None]
  - SYNCOPE [None]
